FAERS Safety Report 13026228 (Version 1)
Quarter: 2016Q4

REPORT INFORMATION
  Report Type: Spontaneous
  Country: US (occurrence: US)
  Receive Date: 20161213
  Receipt Date: 20161213
  Transmission Date: 20170207
  Serious: Yes (Death, Other)
  Sender: FDA-Public Use
  Company Number: None

PATIENT
  Age: 56 Year
  Sex: Male
  Weight: 76.5 kg

DRUGS (1)
  1. BACLOFEN 10 MG TAB ROSEMONT [Suspect]
     Active Substance: BACLOFEN
     Indication: HICCUPS
     Dosage: ?          QUANTITY:45 TABLET(S);?3 TIMES A DAY
     Route: 048
     Dates: start: 20161111, end: 20161113

REACTIONS (4)
  - Dehydration [None]
  - Staring [None]
  - Mobility decreased [None]
  - Speech disorder [None]

NARRATIVE: CASE EVENT DATE: 20161111
